FAERS Safety Report 4594813-3 (Version None)
Quarter: 2005Q1

REPORT INFORMATION
  Report Type: 
  Country: None (occurrence: None)
  Receive Date: 20050223
  Receipt Date: 20050208
  Transmission Date: 20050727
  Serious: Yes (Hospitalization)
  Sender: FDA-Public Use
  Company Number: MK200502-0108-1

PATIENT
  Age: 17 Year
  Sex: Male

DRUGS (1)
  1. ANAFRANIL [Suspect]

REACTIONS (5)
  - BLOOD GROWTH HORMONE INCREASED [None]
  - BLOOD PROLACTIN INCREASED [None]
  - BLOOD TESTOSTERONE INCREASED [None]
  - LABORATORY TEST ABNORMAL [None]
  - TESTICULAR DISORDER [None]
